FAERS Safety Report 17071917 (Version 1)
Quarter: 2019Q4

REPORT INFORMATION
  Report Type: Spontaneous
  Country: CA (occurrence: CA)
  Receive Date: 20191125
  Receipt Date: 20191125
  Transmission Date: 20200122
  Serious: Yes (Other)
  Sender: FDA-Public Use
  Company Number: CA-TEVA-2019-CA-1140061

PATIENT
  Age: 7 Year
  Sex: Female

DRUGS (2)
  1. NOVAMOXIN SUS 250MG/5ML [Suspect]
     Active Substance: AMOXICILLIN
     Indication: MOUTH ULCERATION
     Dosage: 900 MILLIGRAM DAILY;
     Route: 048
  2. ADVIL [Concomitant]
     Active Substance: IBUPROFEN

REACTIONS (2)
  - Peripheral swelling [Recovered/Resolved]
  - Urticaria [Recovered/Resolved]
